FAERS Safety Report 19498994 (Version 1)
Quarter: 2021Q3

REPORT INFORMATION
  Report Type: Report from Study
  Country: US (occurrence: US)
  Receive Date: 20210706
  Receipt Date: 20210706
  Transmission Date: 20211014
  Serious: No
  Sender: FDA-Public Use
  Company Number: US-INCYTE CORPORATION-2021IN004735

PATIENT

DRUGS (2)
  1. JAKAFI [Suspect]
     Active Substance: RUXOLITINIB
     Indication: MYELOFIBROSIS
     Dosage: 10 MILLIGRAM, BID
     Route: 048
     Dates: start: 20190718
  2. JAKAFI [Suspect]
     Active Substance: RUXOLITINIB
     Dosage: 5MG (2 TABLETS) BY MOUTH IN AM/5MG 1 TABLET BY MOUTH IN PM
     Route: 048

REACTIONS (3)
  - Abdominal distension [Unknown]
  - Pain [Unknown]
  - Flatulence [Unknown]
